FAERS Safety Report 25118189 (Version 1)
Quarter: 2025Q1

REPORT INFORMATION
  Report Type: Spontaneous
  Country: US (occurrence: US)
  Receive Date: 20250325
  Receipt Date: 20250325
  Transmission Date: 20250409
  Serious: Yes (Life-Threatening)
  Sender: BAUSCH AND LOMB
  Company Number: US-BAUSCH-BL-2025-003895

PATIENT
  Age: 32 Year
  Sex: Female

DRUGS (2)
  1. BUPROPION [Suspect]
     Active Substance: BUPROPION
     Indication: Product used for unknown indication
     Route: 065
  2. PROPRANOLOL [Suspect]
     Active Substance: PROPRANOLOL HYDROCHLORIDE
     Indication: Product used for unknown indication
     Route: 065

REACTIONS (4)
  - Cardiogenic shock [Unknown]
  - Multiple organ dysfunction syndrome [Unknown]
  - Toxicity to various agents [Unknown]
  - Overdose [Unknown]
